FAERS Safety Report 20909155 (Version 2)
Quarter: 2022Q2

REPORT INFORMATION
  Report Type: Report from Study
  Country: JP (occurrence: JP)
  Receive Date: 20220603
  Receipt Date: 20220615
  Transmission Date: 20220721
  Serious: Yes (Hospitalization)
  Sender: FDA-Public Use
  Company Number: JP-JNJFOC-20220559240

PATIENT
  Age: 66 Year
  Sex: Male

DRUGS (8)
  1. TRACLEER [Suspect]
     Active Substance: BOSENTAN
     Indication: Pulmonary arterial hypertension
     Dosage: 62.5 MG, BID, IN THE MORNING AND EVENING
     Route: 048
     Dates: start: 20180412, end: 20180519
  2. SPIRONOLACTONE [Suspect]
     Active Substance: SPIRONOLACTONE
     Indication: Cardiac failure chronic
     Dosage: 25 MG, QD
     Route: 048
     Dates: start: 20170303, end: 20180515
  3. ENALAPRIL [Suspect]
     Active Substance: ENALAPRIL
     Indication: Blood pressure increased
     Dosage: 10 MG, QD
     Route: 048
     Dates: start: 20170428, end: 20180515
  4. ENALAPRIL [Suspect]
     Active Substance: ENALAPRIL
     Indication: Cardiac failure chronic
  5. XARELTO [Concomitant]
     Active Substance: RIVAROXABAN
     Indication: Atrial fibrillation
     Route: 048
  6. SARPOGRELATE [Concomitant]
     Active Substance: SARPOGRELATE
     Indication: Raynaud^s phenomenon
     Route: 048
  7. BONALON [Concomitant]
     Active Substance: ALENDRONATE SODIUM
     Indication: Osteoporosis
     Route: 048
  8. METHYLCOBALAMIN [Concomitant]
     Active Substance: METHYLCOBALAMIN
     Indication: Systemic scleroderma
     Route: 048

REACTIONS (6)
  - Shock [Recovered/Resolved]
  - Malaise [Recovered/Resolved]
  - Blood pressure decreased [Recovered/Resolved]
  - Enterocolitis [Recovered/Resolved]
  - Dehydration [Recovered/Resolved]
  - Diarrhoea [Recovered/Resolved]

NARRATIVE: CASE EVENT DATE: 20180511
